FAERS Safety Report 14797325 (Version 1)
Quarter: 2018Q2

REPORT INFORMATION
  Report Type: Spontaneous
  Country: US (occurrence: US)
  Receive Date: 20180424
  Receipt Date: 20180424
  Transmission Date: 20180711
  Serious: No
  Sender: FDA-Public Use
  Company Number: US-GLENMARK PHARMACEUTICALS-2017GMK028723

PATIENT

DRUGS (2)
  1. CICLOPIROX. [Suspect]
     Active Substance: CICLOPIROX
     Indication: FUNGAL SKIN INFECTION
     Dosage: 1 DF, OD
     Route: 061
  2. CICLOPIROX. [Suspect]
     Active Substance: CICLOPIROX
     Indication: SKIN DISORDER

REACTIONS (2)
  - Off label use [Unknown]
  - Self-medication [Unknown]
